FAERS Safety Report 7290583-9 (Version None)
Quarter: 2011Q1

REPORT INFORMATION
  Report Type: 
  Country: None (occurrence: None)
  Receive Date: 20110214
  Receipt Date: 20110204
  Transmission Date: 20110831
  Serious: Yes (Hospitalization)
  Sender: FDA-Public Use
  Company Number: FR-SANOFI-AVENTIS-2011SA003730

PATIENT
  Age: 77 Year
  Sex: Male
  Weight: 81 kg

DRUGS (10)
  1. CORDARONE [Concomitant]
     Route: 048
  2. LASIX [Concomitant]
     Route: 048
  3. MOPRAL [Concomitant]
     Route: 065
  4. CORGARD [Concomitant]
     Dosage: DOSE:0.5 UNIT(S)
     Route: 048
  5. DIFFU K [Concomitant]
     Route: 048
  6. ATACAND [Concomitant]
     Route: 048
     Dates: end: 20110111
  7. PREVISCAN [Concomitant]
     Indication: ATRIAL FIBRILLATION
     Route: 048
  8. MULTAQ [Suspect]
     Indication: ATRIAL FIBRILLATION
     Route: 048
     Dates: start: 20110107, end: 20110111
  9. TARDYFERON /GFR/ [Concomitant]
     Route: 048
  10. FLECAINE [Concomitant]
     Route: 065

REACTIONS (12)
  - CYTOLYTIC HEPATITIS [None]
  - DECREASED APPETITE [None]
  - RENAL FAILURE [None]
  - DEHYDRATION [None]
  - PROTHROMBIN TIME RATIO DECREASED [None]
  - VOMITING [None]
  - NAUSEA [None]
  - ASTHENIA [None]
  - ALANINE AMINOTRANSFERASE INCREASED [None]
  - DIARRHOEA [None]
  - GENERAL PHYSICAL HEALTH DETERIORATION [None]
  - WEIGHT DECREASED [None]
